FAERS Safety Report 6346637-4 (Version None)
Quarter: 2009Q3

REPORT INFORMATION
  Report Type: 
  Country: None (occurrence: None)
  Receive Date: 20090909
  Receipt Date: 20090903
  Transmission Date: 20100115
  Serious: Yes (Other)
  Sender: FDA-Public Use
  Company Number: US-MERCK-0909USA00486

PATIENT
  Age: 31 Year
  Sex: Male

DRUGS (4)
  1. PROPECIA [Suspect]
     Route: 048
     Dates: start: 20090823
  2. AVELOX [Suspect]
     Indication: SINUSITIS
     Route: 065
     Dates: start: 20090824
  3. ADDERALL TABLETS [Suspect]
     Route: 065
     Dates: start: 20090824
  4. ZITHROMAX [Concomitant]
     Route: 065

REACTIONS (7)
  - ANAPHYLACTIC REACTION [None]
  - BLINDNESS [None]
  - BLOOD PRESSURE DECREASED [None]
  - ERYTHEMA [None]
  - PARAESTHESIA ORAL [None]
  - SWELLING FACE [None]
  - SYNCOPE [None]
